FAERS Safety Report 6594207-5 (Version None)
Quarter: 2010Q1

REPORT INFORMATION
  Report Type: 
  Country: None (occurrence: None)
  Receive Date: 20100222
  Receipt Date: 20100212
  Transmission Date: 20100710
  Serious: Yes (Other)
  Sender: FDA-Public Use
  Company Number: CN-BRACCO-000138

PATIENT
  Age: 67 Year
  Sex: Female

DRUGS (5)
  1. SODIUM CHLORIDE [Concomitant]
     Dosage: 10% NACI
     Route: 042
     Dates: start: 20070401, end: 20070401
  2. IOPAMIRO [Suspect]
     Indication: ARTERIOGRAM CORONARY
     Route: 065
     Dates: start: 20070417, end: 20070417
  3. IOPAMIRO [Suspect]
     Indication: CORONARY ARTERY DISEASE
     Route: 065
     Dates: start: 20070417, end: 20070417
  4. IOPAMIRO [Suspect]
     Indication: PERCUTANEOUS CORONARY INTERVENTION
     Route: 065
     Dates: start: 20070417, end: 20070417
  5. IOPAMIRO [Suspect]
     Indication: MYOCARDIAL INFARCTION
     Route: 065
     Dates: start: 20070417, end: 20070417

REACTIONS (6)
  - CONFUSIONAL STATE [None]
  - DEPRESSED LEVEL OF CONSCIOUSNESS [None]
  - DEPRESSION [None]
  - HYPONATRAEMIA [None]
  - NAUSEA [None]
  - VOMITING [None]
